FAERS Safety Report 22661898 (Version 1)
Quarter: 2023Q2

REPORT INFORMATION
  Report Type: Spontaneous
  Country: IT (occurrence: IT)
  Receive Date: 20230630
  Receipt Date: 20230630
  Transmission Date: 20230722
  Serious: Yes (Hospitalization, Other)
  Sender: FDA-Public Use
  Company Number: IT-ASTELLAS-2023EU001845

PATIENT
  Sex: Male

DRUGS (11)
  1. IBRUTINIB [Suspect]
     Active Substance: IBRUTINIB
     Indication: Anaemia
     Route: 048
  2. IBRUTINIB [Suspect]
     Active Substance: IBRUTINIB
     Indication: Anaemia
     Route: 048
     Dates: start: 201907
  3. IBRUTINIB [Suspect]
     Active Substance: IBRUTINIB
     Indication: Anaemia
     Route: 048
  4. HUMAN IMMUNOGLOBULIN G [Concomitant]
     Active Substance: HUMAN IMMUNOGLOBULIN G
     Indication: Hypogammaglobulinaemia
     Dosage: UNK UNK, UNKNOWN FREQ.
     Route: 042
  5. BENDAMUSTINE HYDROCHLORIDE [Suspect]
     Active Substance: BENDAMUSTINE HYDROCHLORIDE
     Indication: Waldenstrom^s macroglobulinaemia recurrent
     Dosage: CYCLIC
     Route: 042
     Dates: start: 2017
  6. ENTECAVIR [Concomitant]
     Active Substance: ENTECAVIR
     Indication: Chronic hepatitis B
     Dosage: UNK UNK, UNKNOWN FREQ.
     Route: 065
  7. ISAVUCONAZOLE [Interacting]
     Active Substance: ISAVUCONAZOLE
     Indication: Bronchopulmonary aspergillosis
     Dosage: UNKNOWN FREQENCY
     Route: 065
     Dates: start: 202101
  8. RITUXIMAB [Concomitant]
     Active Substance: RITUXIMAB
     Indication: Waldenstrom^s macroglobulinaemia recurrent
     Dosage: UNK UNK, UNKNOWN FREQ.
     Route: 065
     Dates: start: 2006
  9. RITUXIMAB [Concomitant]
     Active Substance: RITUXIMAB
     Indication: Waldenstrom^s macroglobulinaemia recurrent
     Dosage: UNK UNK, UNKNOWN FREQ.
     Route: 065
     Dates: start: 2017
  10. RITUXIMAB [Concomitant]
     Active Substance: RITUXIMAB
     Indication: Waldenstrom^s macroglobulinaemia recurrent
     Dosage: UNK UNK, UNKNOWN FREQ.
     Route: 065
     Dates: start: 2011
  11. RITUXIMAB [Concomitant]
     Active Substance: RITUXIMAB
     Indication: Waldenstrom^s macroglobulinaemia recurrent
     Dosage: UNK UNK, UNKNOWN FREQ.
     Route: 065
     Dates: start: 2001

REACTIONS (4)
  - Hepatotoxicity [Unknown]
  - Off label use [Unknown]
  - Product use issue [Unknown]
  - Drug interaction [Unknown]

NARRATIVE: CASE EVENT DATE: 20210301
